FAERS Safety Report 7668470-3 (Version None)
Quarter: 2011Q3

REPORT INFORMATION
  Report Type: 
  Country: None (occurrence: None)
  Receive Date: 20110808
  Receipt Date: 20110726
  Transmission Date: 20111222
  Serious: Yes (Hospitalization)
  Sender: FDA-Public Use
  Company Number: NL-RANBAXY-2011RR-43418

PATIENT
  Sex: Female

DRUGS (5)
  1. NAPROXEN [Suspect]
     Dosage: 500 MG, BID
     Route: 065
     Dates: start: 20110219, end: 20110219
  2. IBUPROFEN [Suspect]
     Dosage: 400 MG, TID
     Route: 065
     Dates: start: 20110220, end: 20110225
  3. IBUPROFEN [Suspect]
     Indication: TENDONITIS
     Dosage: 400 MG, TID
     Route: 065
     Dates: start: 20110217, end: 20110218
  4. DICLOFENAC SODIUM [Suspect]
     Indication: TENDONITIS
     Dosage: 50 MG, TID
     Route: 065
     Dates: start: 20110112, end: 20110118
  5. NAPROXEN [Suspect]
     Indication: TENDONITIS
     Dosage: 500 MG, TID
     Route: 065
     Dates: start: 20110119, end: 20110124

REACTIONS (1)
  - OPTIC NEURITIS [None]
